FAERS Safety Report 6761793-1 (Version None)
Quarter: 2010Q2

REPORT INFORMATION
  Report Type: 
  Country: None (occurrence: None)
  Receive Date: 20100609
  Receipt Date: 20100607
  Transmission Date: 20101027
  Serious: Yes (Hospitalization, Disabling)
  Sender: FDA-Public Use
  Company Number: BR-BAYER-BR-2006-011258

PATIENT
  Age: 29 Year
  Sex: Female

DRUGS (4)
  1. BETAFERON [Suspect]
     Indication: MULTIPLE SCLEROSIS
     Dosage: BETAJECT
     Route: 058
     Dates: start: 20070101
  2. BETAFERON [Suspect]
     Route: 058
     Dates: start: 20060101, end: 20070101
  3. BETAFERON [Suspect]
     Route: 058
     Dates: start: 20030101, end: 20060401
  4. FLUOXETINE [Concomitant]
     Indication: DEPRESSION
     Dosage: 1 TABLET / DAY
     Route: 048
     Dates: start: 20030101

REACTIONS (4)
  - ABASIA [None]
  - GAIT DISTURBANCE [None]
  - MULTIPLE SCLEROSIS [None]
  - MUSCULAR WEAKNESS [None]
